FAERS Safety Report 20797963 (Version 2)
Quarter: 2022Q3

REPORT INFORMATION
  Report Type: Spontaneous
  Country: US (occurrence: US)
  Receive Date: 20220506
  Receipt Date: 20220809
  Transmission Date: 20221026
  Serious: Yes (Hospitalization, Other)
  Sender: FDA-Public Use
  Company Number: US-BRISTOL-MYERS SQUIBB COMPANY-2022-020729

PATIENT
  Age: 72 Year
  Sex: Female
  Weight: 95.254 kg

DRUGS (1)
  1. REVLIMID [Suspect]
     Active Substance: LENALIDOMIDE
     Indication: Plasma cell myeloma
     Dosage: 21 DAYS OF A 28 DAYS CYCLE
     Route: 048
     Dates: start: 20210601, end: 20220707

REACTIONS (7)
  - Pneumonia [Recovering/Resolving]
  - COVID-19 [Unknown]
  - Fear [Unknown]
  - Abdominal pain upper [Unknown]
  - Diarrhoea [Unknown]
  - Myalgia [Unknown]
  - Reflux gastritis [Unknown]

NARRATIVE: CASE EVENT DATE: 20220707
